FAERS Safety Report 12567467 (Version 3)
Quarter: 2017Q3

REPORT INFORMATION
  Report Type: Spontaneous
  Country: US (occurrence: US)
  Receive Date: 20160718
  Receipt Date: 20170713
  Transmission Date: 20171127
  Serious: No
  Sender: FDA-Public Use
  Company Number: US-ASTELLAS-2016US024085

PATIENT
  Sex: Male

DRUGS (5)
  1. MYRBETRIQ [Suspect]
     Active Substance: MIRABEGRON
     Indication: NOCTURIA
     Route: 048
     Dates: start: 201607
  2. AMLODIPINE [Concomitant]
     Active Substance: AMLODIPINE BESYLATE
     Indication: BLOOD PRESSURE ABNORMAL
     Dosage: UNK UNK, UNKNOWN FREQ.
     Route: 065
  3. MYRBETRIQ [Interacting]
     Active Substance: MIRABEGRON
     Indication: NOCTURIA
     Route: 048
     Dates: start: 201511
  4. MYRBETRIQ [Interacting]
     Active Substance: MIRABEGRON
     Route: 048
     Dates: start: 201601, end: 201607
  5. HCTZ [Interacting]
     Active Substance: HYDROCHLOROTHIAZIDE
     Indication: PRODUCT USED FOR UNKNOWN INDICATION
     Dosage: UNK, UNKNOWN FREQ.
     Route: 065

REACTIONS (6)
  - Drug ineffective [Unknown]
  - Micturition urgency [Unknown]
  - Dysuria [Unknown]
  - Blood pressure increased [Unknown]
  - Drug interaction [Unknown]
  - Drug ineffective for unapproved indication [Recovering/Resolving]
